FAERS Safety Report 6204625-2 (Version None)
Quarter: 2009Q2

REPORT INFORMATION
  Report Type: 
  Country: None (occurrence: None)
  Receive Date: 20090527
  Receipt Date: 20090513
  Transmission Date: 20091009
  Serious: Yes (Other)
  Sender: FDA-Public Use
  Company Number: US-PFIZER INC-2009213617

PATIENT
  Sex: Female

DRUGS (1)
  1. CLINDAMYCIN HCL [Suspect]
     Dosage: FREQUENCY: EVERY DAY;
     Route: 048

REACTIONS (2)
  - DYSPNOEA [None]
  - HYPOAESTHESIA ORAL [None]
